FAERS Safety Report 6469173-3 (Version None)
Quarter: 2009Q4

REPORT INFORMATION
  Report Type: 
  Country: None (occurrence: None)
  Receive Date: 20091203
  Receipt Date: 20071204
  Transmission Date: 20100525
  Serious: Yes (Hospitalization)
  Sender: FDA-Public Use
  Company Number: US-ELI_LILLY_AND_COMPANY-US200707004172

PATIENT
  Sex: Male

DRUGS (2)
  1. CIALIS [Suspect]
     Dosage: 10 MG, UNK
  2. CIALIS [Suspect]
     Dosage: 20 MG, UNK

REACTIONS (5)
  - INFECTION [None]
  - PERIPHERAL VASCULAR DISORDER [None]
  - THERAPEUTIC RESPONSE DECREASED [None]
  - VEIN DISORDER [None]
  - WOUND DEHISCENCE [None]
